FAERS Safety Report 4867479-2 (Version None)
Quarter: 2005Q4

REPORT INFORMATION
  Report Type: 
  Country: None (occurrence: None)
  Receive Date: 20051222
  Receipt Date: 20051212
  Transmission Date: 20060501
  Serious: Yes (Death)
  Sender: FDA-Public Use
  Company Number: 2005S1007142

PATIENT
  Age: 87 Year
  Sex: Female

DRUGS (8)
  1. CLOZAPINE [Suspect]
     Indication: BIPOLAR DISORDER
     Dosage: 12.5 MG;QD;PO
     Route: 048
     Dates: start: 20050707, end: 20051101
  2. ARIPIPRAZOLE [Concomitant]
  3. LEVOTHYROXINE SODIUM [Concomitant]
  4. DONEPEZIL HYDROCHLORIDE [Concomitant]
  5. VALPROATE SODIUM [Concomitant]
  6. QUETIAPINE FUMARATE [Concomitant]
  7. VENLAFAXINE HCL [Concomitant]
  8. PROPRANOLOL HYDROCHLORIDE [Concomitant]

REACTIONS (1)
  - GRANULOCYTOPENIA [None]
